FAERS Safety Report 5903213-2 (Version None)
Quarter: 2008Q3

REPORT INFORMATION
  Report Type: 
  Country: None (occurrence: None)
  Receive Date: 20080930
  Receipt Date: 20080925
  Transmission Date: 20090109
  Serious: Yes (Hospitalization)
  Sender: FDA-Public Use
  Company Number: US-BRISTOL-MYERS SQUIBB COMPANY-14183008

PATIENT
  Age: 65 Year
  Sex: Male

DRUGS (19)
  1. CETUXIMAB [Suspect]
     Indication: NON-SMALL CELL LUNG CANCER
     Dosage: INITITED ON 26-FEB-2008 WITH 400MG/M2
     Route: 042
     Dates: start: 20080226, end: 20080610
  2. RADIATION THERAPY [Suspect]
     Indication: NON-SMALL CELL LUNG CANCER
     Dosage: 1 DOSAGE FORM = 73.5 GY IN 35 FRACTIONS OVER 7 WEEKS INITIAL DOSE: 04MAR08
     Dates: start: 20080304, end: 20080421
  3. RANEXA [Concomitant]
  4. OMEPRAZOLE [Concomitant]
  5. ROBITUSSIN [Concomitant]
  6. MAGNESIUM OXIDE [Concomitant]
  7. PROCHLORPERAZINE [Concomitant]
  8. LEXAPRO [Concomitant]
  9. VYTORIN [Concomitant]
     Dosage: 1 DOSAGE FORM=10/35 UNITS NOT SPECIFIED
  10. PLAVIX [Concomitant]
  11. NADOLOL [Concomitant]
  12. EXFORGE [Concomitant]
     Dosage: 1 DOSAGE FORM=5/160(UNITS NOT SPEC)
     Route: 048
  13. ASPIRIN [Concomitant]
  14. RESTORIL [Concomitant]
  15. FLOMAX [Concomitant]
  16. FENTANYL TRANSDERMAL SYSTEM [Concomitant]
     Route: 062
  17. OXYCODONE HCL [Concomitant]
  18. COMBIVENT [Concomitant]
  19. DOCUSATE [Concomitant]

REACTIONS (10)
  - BRONCHOPLEURAL FISTULA [None]
  - BURSITIS [None]
  - CELLULITIS [None]
  - COUGH [None]
  - DYSPNOEA [None]
  - PARONYCHIA [None]
  - PNEUMONIA [None]
  - PNEUMONITIS [None]
  - PYREXIA [None]
  - SEPSIS [None]
